FAERS Safety Report 10132747 (Version 2)
Quarter: 2015Q1

REPORT INFORMATION
  Report Type: Other
  Country: US (occurrence: US)
  Receive Date: 20140428
  Receipt Date: 20150225
  Transmission Date: 20150720
  Serious: Yes (Death, Hospitalization, Other)
  Sender: FDA-Public Use
  Company Number: US-GSKPPD-2014GSK034081

PATIENT
  Age: 67 Year
  Sex: Male

DRUGS (5)
  1. LANOXIN [Concomitant]
     Active Substance: DIGOXIN
  2. DILTIAZEM [Concomitant]
     Active Substance: DILTIAZEM
  3. LIPITOR [Concomitant]
     Active Substance: ATORVASTATIN CALCIUM
  4. AVANDIA [Suspect]
     Active Substance: ROSIGLITAZONE MALEATE
     Indication: DIABETES MELLITUS
     Dosage: DATES OF AVANDIA USE COULD NOT BE CONFIRMED IN RECORDS REVIEWED.
     Route: 048
  5. AVAPRO [Concomitant]
     Active Substance: IRBESARTAN

REACTIONS (3)
  - Myocardial infarction [Unknown]
  - Cardiac arrest [Fatal]
  - Cardiac failure congestive [Recovered/Resolved]

NARRATIVE: CASE EVENT DATE: 20051215
